FAERS Safety Report 7258024-5 (Version None)
Quarter: 2011Q1

REPORT INFORMATION
  Report Type: 
  Country: None (occurrence: None)
  Receive Date: 20110129
  Receipt Date: 20100610
  Transmission Date: 20110831
  Serious: No
  Sender: FDA-Public Use
  Company Number: US-ABBOTT-10P-163-0651684-00

PATIENT
  Sex: Female
  Weight: 87.622 kg

DRUGS (6)
  1. VITAMIN B [Concomitant]
     Indication: ANAEMIA PROPHYLAXIS
     Route: 058
  2. VITAMIN B [Concomitant]
     Indication: VITAMIN SUPPLEMENTATION
     Route: 048
  3. LIALDA [Concomitant]
     Indication: CROHN'S DISEASE
     Route: 048
  4. ENTOCORT EC [Concomitant]
     Indication: CROHN'S DISEASE
     Route: 048
  5. HUMIRA [Suspect]
     Indication: CROHN'S DISEASE
     Route: 058
     Dates: start: 20090101
  6. CALCIUM W/D [Concomitant]
     Indication: MINERAL SUPPLEMENTATION
     Route: 048

REACTIONS (1)
  - OROPHARYNGEAL PAIN [None]
